FAERS Safety Report 19644620 (Version 1)
Quarter: 2021Q3

REPORT INFORMATION
  Report Type: Spontaneous
  Country: US (occurrence: US)
  Receive Date: 20210802
  Receipt Date: 20210802
  Transmission Date: 20211014
  Serious: Yes (Other)
  Sender: FDA-Public Use
  Company Number: US-JNJFOC-20210746113

PATIENT
  Age: 6 Decade
  Sex: Female

DRUGS (1)
  1. NEUTROGENA BEACH DEFENSE WATER AND SUN PROTECTION SUNSCREEN BROAD SPECTRUM SPF 70 [Suspect]
     Active Substance: AVOBENZONE\HOMOSALATE\OCTISALATE\OCTOCRYLENE
     Indication: PROPHYLAXIS AGAINST SOLAR RADIATION
     Dosage: APPLIED LIBERALLY ON BODY IN THE MORNING USUALLY, BUT BEACH 2?4 TIMES
     Route: 061
     Dates: start: 2019

REACTIONS (1)
  - Basal cell carcinoma [Not Recovered/Not Resolved]

NARRATIVE: CASE EVENT DATE: 2020
